FAERS Safety Report 4393607-1 (Version None)
Quarter: 2004Q3

REPORT INFORMATION
  Report Type: 
  Country: None (occurrence: None)
  Receive Date: 20040706
  Receipt Date: 20040706
  Transmission Date: 20050211
  Serious: Yes (Hospitalization)
  Sender: FDA-Public Use
  Company Number: None

PATIENT
  Age: 55 Year
  Sex: Male
  Weight: 45.8133 kg

DRUGS (1)
  1. ANCEF [Suspect]

REACTIONS (2)
  - NEUTROPENIA [None]
  - PYREXIA [None]
